FAERS Safety Report 10539995 (Version 1)
Quarter: 2014Q4

REPORT INFORMATION
  Report Type: Spontaneous
  Country: US (occurrence: None)
  Receive Date: 20141022
  Receipt Date: 20141022
  Transmission Date: 20150529
  Serious: Yes (Hospitalization, Other)
  Sender: FDA-Public Use
  Company Number: LH201400330

PATIENT
  Sex: Female

DRUGS (1)
  1. MAKENA [Suspect]
     Active Substance: HYDROXYPROGESTERONE CAPROATE
     Indication: EXPOSURE DURING PREGNANCY
     Dates: start: 20140820, end: 20140905

REACTIONS (4)
  - Foetal exposure during pregnancy [None]
  - Premature baby [None]
  - Functional gastrointestinal disorder [None]
  - Low birth weight baby [None]

NARRATIVE: CASE EVENT DATE: 2014
